FAERS Safety Report 25610294 (Version 4)
Quarter: 2025Q3

REPORT INFORMATION
  Report Type: Spontaneous
  Country: EU (occurrence: EU)
  Receive Date: 20250728
  Receipt Date: 20250814
  Transmission Date: 20251021
  Serious: Yes (Hospitalization, Other)
  Sender: TAKEDA
  Company Number: EU-TEVA-2020-IT-1824630

PATIENT
  Age: 43 Year
  Sex: Female

DRUGS (19)
  1. LANSOPRAZOLE [Suspect]
     Active Substance: LANSOPRAZOLE
     Indication: Product used for unknown indication
  2. ACETAMINOPHEN [Suspect]
     Active Substance: ACETAMINOPHEN
     Indication: Headache
  3. FENTANYL [Suspect]
     Active Substance: FENTANYL
     Indication: Headache
  4. ACETAMINOPHEN AND CODEINE [Suspect]
     Active Substance: ACETAMINOPHEN\CODEINE PHOSPHATE
     Indication: Headache
  5. ACETAMINOPHEN AND CODEINE [Suspect]
     Active Substance: ACETAMINOPHEN\CODEINE PHOSPHATE
     Dosage: UNK, QD
  6. ACETAMINOPHEN AND CODEINE [Suspect]
     Active Substance: ACETAMINOPHEN\CODEINE PHOSPHATE
     Dosage: 20 DOSAGE FORM, QD
  7. MORPHINE [Suspect]
     Active Substance: MORPHINE
     Indication: Headache
  8. MORPHINE [Suspect]
     Active Substance: MORPHINE
  9. INDOMETACIN MEGLUMINE [Suspect]
     Active Substance: INDOMETACIN MEGLUMINE
     Indication: Headache
  10. INDOMETACIN MEGLUMINE [Suspect]
     Active Substance: INDOMETACIN MEGLUMINE
  11. INDOMETACIN MEGLUMINE [Suspect]
     Active Substance: INDOMETACIN MEGLUMINE
     Dosage: 100 MILLIGRAM, QD
  12. OXYCODONE AND ACETAMINOPHEN [Suspect]
     Active Substance: ACETAMINOPHEN\OXYCODONE HYDROCHLORIDE
     Indication: Headache
     Dosage: UNK, QD
  13. OXYCODONE AND ACETAMINOPHEN [Suspect]
     Active Substance: ACETAMINOPHEN\OXYCODONE HYDROCHLORIDE
     Dosage: 40 DOSAGE FORM, QD
  14. INDOMETHACIN [Suspect]
     Active Substance: INDOMETHACIN
     Indication: Headache
  15. TOPIRAMATE [Suspect]
     Active Substance: TOPIRAMATE
     Indication: Headache
  16. NOVALGINA [Suspect]
     Active Substance: ACETAMINOPHEN\CAFFEINE
     Indication: Headache
  17. METAMIZOLE [Suspect]
     Active Substance: METAMIZOLE
     Indication: Headache
  18. METHADONE [Suspect]
     Active Substance: METHADONE HYDROCHLORIDE
     Indication: Headache
  19. CLOMIPRAMINE [Suspect]
     Active Substance: CLOMIPRAMINE
     Indication: Headache

REACTIONS (7)
  - Gastroduodenal ulcer [Unknown]
  - Gastric haemorrhage [Unknown]
  - Drug abuse [Recovered/Resolved]
  - Duodenal ulcer [Unknown]
  - Gastric ulcer [Unknown]
  - Intentional product misuse [Unknown]
  - Intentional overdose [Unknown]
